FAERS Safety Report 23630414 (Version 2)
Quarter: 2024Q2

REPORT INFORMATION
  Report Type: Report from Study
  Country: CA (occurrence: CA)
  Receive Date: 20240314
  Receipt Date: 20240606
  Transmission Date: 20240716
  Serious: Yes (Other)
  Sender: FDA-Public Use
  Company Number: CA-JNJFOC-20220444343

PATIENT
  Age: 54 Year
  Sex: Female

DRUGS (3)
  1. REMICADE [Suspect]
     Active Substance: INFLIXIMAB
     Indication: Rheumatoid arthritis
     Route: 041
     Dates: start: 20181205, end: 201906
  2. REMICADE [Suspect]
     Active Substance: INFLIXIMAB
     Indication: Pyoderma gangrenosum
     Dosage: AT 0, 4 AND 8 WEEKS?ON 19-MAY-2022, THE PATIENT RECEIVED THE INFUSION.
     Route: 041
  3. REMICADE [Suspect]
     Active Substance: INFLIXIMAB
     Dosage: DOSE }5MG/KG.
     Route: 041

REACTIONS (9)
  - Localised infection [Unknown]
  - Wound [Unknown]
  - Malaise [Unknown]
  - Herpes zoster [Recovered/Resolved]
  - Infection [Unknown]
  - Vomiting [Recovered/Resolved]
  - Diarrhoea [Recovered/Resolved]
  - Off label use [Unknown]
  - Incorrect drug administration rate [Unknown]

NARRATIVE: CASE EVENT DATE: 20220801
